FAERS Safety Report 8315570-0 (Version None)
Quarter: 2012Q2

REPORT INFORMATION
  Report Type: 
  Country: None (occurrence: None)
  Receive Date: 20120426
  Receipt Date: 20120421
  Transmission Date: 20120825
  Serious: Yes (Hospitalization, Other)
  Sender: FDA-Public Use
  Company Number: BR-ABBOTT-12P-020-0913067-00

PATIENT
  Sex: Female
  Weight: 53 kg

DRUGS (10)
  1. OMEPRAZOLE [Concomitant]
     Indication: GASTRIC DISORDER
     Route: 048
  2. FOLIC ACID [Concomitant]
     Indication: VITAMIN SUPPLEMENTATION
     Route: 048
  3. HUMIRA [Suspect]
     Route: 058
  4. CALCIUM CARBONATE [Concomitant]
     Indication: RHEUMATOID ARTHRITIS
     Route: 048
     Dates: start: 20111007
  5. OMEPRAZOLE [Concomitant]
     Indication: PROPHYLAXIS
  6. HUMIRA [Suspect]
     Indication: RHEUMATOID ARTHRITIS
     Route: 058
     Dates: start: 20120121, end: 20120217
  7. METHOTREXATE [Concomitant]
     Indication: RHEUMATOID ARTHRITIS
     Route: 058
  8. PREDNISONE [Concomitant]
     Indication: RHEUMATOID ARTHRITIS
     Route: 048
     Dates: start: 20111007
  9. VITAMIN D [Concomitant]
     Indication: RHEUMATOID ARTHRITIS
     Route: 048
     Dates: start: 20111007
  10. DICLOFENAC SODIUM [Concomitant]
     Indication: RHEUMATOID ARTHRITIS
     Route: 048
     Dates: start: 20111007

REACTIONS (1)
  - OVARIAN NEOPLASM [None]
